FAERS Safety Report 10457021 (Version 1)
Quarter: 2014Q3

REPORT INFORMATION
  Report Type: Spontaneous
  Country: CM (occurrence: None)
  Receive Date: 20140912
  Receipt Date: 20140912
  Transmission Date: 20150326
  Serious: Yes (Other)
  Sender: FDA-Public Use
  Company Number: 2014VER00207

PATIENT
  Age: 30 Year
  Sex: Male
  Weight: 65 kg

DRUGS (8)
  1. STREPTOMYCIN [Suspect]
     Active Substance: STREPTOMYCIN\STREPTOMYCIN SULFATE
     Indication: MYCOBACTERIUM ULCERANS INFECTION
     Dosage: 1X/DAY
     Route: 030
     Dates: start: 20130109, end: 20140110
  2. EFAVIRENZ [Suspect]
     Active Substance: EFAVIRENZ
     Indication: HIV INFECTION
     Dates: start: 20130109
  3. CLARITHROMYCIN  (CLARITHROMYCIN) [Suspect]
     Active Substance: CLARITHROMYCIN
     Indication: MYCOBACTERIUM ULCERANS INFECTION
     Dosage: 2X/DAY
     Dates: start: 20130110, end: 20130303
  4. CO-TRIMOXAZOLE (TRIMETHOPRIM AND SULFAMETHOXAZOLE) [Concomitant]
  5. ZIDOVUDINE (ZIDOVUDINE) [Suspect]
     Active Substance: ZIDOVUDINE
     Indication: HIV INFECTION
     Dates: start: 20130109
  6. LAMIVUDINE (LAMIVUDINE) [Suspect]
     Active Substance: LAMIVUDINE
     Indication: HIV INFECTION
     Dates: start: 20130109
  7. RIFAMPIN. [Suspect]
     Active Substance: RIFAMPIN
     Indication: MYCOBACTERIUM ULCERANS INFECTION
     Dosage: 1X/DAY
     Route: 048
     Dates: start: 20130109, end: 20130303
  8. PREDNISOLONE. [Concomitant]
     Active Substance: PREDNISOLONE

REACTIONS (3)
  - Paradoxical drug reaction [None]
  - Skin ulcer [None]
  - Wound necrosis [None]

NARRATIVE: CASE EVENT DATE: 2013
